FAERS Safety Report 4329960-4 (Version None)
Quarter: 2004Q2

REPORT INFORMATION
  Report Type: 
  Country: None (occurrence: None)
  Receive Date: 20040401
  Receipt Date: 20040310
  Transmission Date: 20050107
  Serious: Yes (Hospitalization)
  Sender: FDA-Public Use
  Company Number: US-MERCK-0403USA01032

PATIENT
  Age: 83 Year
  Sex: Male

DRUGS (18)
  1. CALCIUM (UNSPECIFIED) [Concomitant]
     Route: 065
  2. ZETIA [Suspect]
     Indication: HYPERCHOLESTEROLAEMIA
     Route: 048
     Dates: start: 20040302
  3. ZETIA [Suspect]
     Indication: HYPERLIPIDAEMIA
     Route: 048
     Dates: start: 20040302
  4. FLUDROCORTISONE [Concomitant]
     Route: 065
  5. FLORINEF [Concomitant]
     Route: 065
  6. LASIX [Concomitant]
     Route: 065
  7. LASIX [Concomitant]
     Route: 065
  8. HYDRODIURIL [Concomitant]
     Route: 048
  9. LEVOTHYROXINE SODIUM [Concomitant]
     Route: 048
  10. SYNTHROID [Concomitant]
     Route: 065
  11. MEVACOR [Concomitant]
     Route: 048
  12. TOPROL-XL [Concomitant]
     Route: 065
  13. PREDNISONE [Concomitant]
     Route: 065
  14. SPIRONOLACTONE [Concomitant]
     Route: 065
  15. ANDROGEL [Concomitant]
     Route: 065
  16. VITAMIN B COMPLEX [Concomitant]
     Route: 065
  17. VITAMINS (UNSPECIFIED) [Concomitant]
     Route: 065
  18. COUMADIN [Suspect]
     Route: 065

REACTIONS (1)
  - INTERNATIONAL NORMALISED RATIO INCREASED [None]
